FAERS Safety Report 12961539 (Version 8)
Quarter: 2018Q2

REPORT INFORMATION
  Report Type: Report from Study
  Country: CA (occurrence: CA)
  Receive Date: 20161121
  Receipt Date: 20180504
  Transmission Date: 20180711
  Serious: Yes (Hospitalization)
  Sender: FDA-Public Use
  Company Number: CA-TAKEDA-2016TUS020337

PATIENT
  Age: 50 Year
  Sex: Male

DRUGS (11)
  1. VEDOLIZUMAB [Suspect]
     Active Substance: VEDOLIZUMAB
     Indication: COLITIS ULCERATIVE
     Dosage: 300 MG, UNK
     Route: 042
     Dates: start: 20161026
  2. INVOKANA [Concomitant]
     Active Substance: CANAGLIFLOZIN
     Dosage: UNK
  3. METFORMIN [Concomitant]
     Active Substance: METFORMIN HYDROCHLORIDE
     Dosage: UNK
  4. SYNTHROID [Concomitant]
     Active Substance: LEVOTHYROXINE SODIUM
     Dosage: UNK
  5. HUMIRA [Concomitant]
     Active Substance: ADALIMUMAB
     Dosage: UNK
  6. VEDOLIZUMAB [Suspect]
     Active Substance: VEDOLIZUMAB
     Dosage: 300 MG, UNK
     Route: 042
     Dates: start: 20161126
  7. VEDOLIZUMAB [Suspect]
     Active Substance: VEDOLIZUMAB
     Dosage: 300 MG, Q4WEEKS
     Route: 042
     Dates: start: 20180430
  8. ASPIRINE [Concomitant]
     Active Substance: ASPIRIN
     Dosage: UNK
  9. COVERSYL                           /00790702/ [Concomitant]
     Active Substance: PERINDOPRIL
     Dosage: UNK
  10. APO-LANSOPRAZOLE [Concomitant]
     Active Substance: LANSOPRAZOLE
     Dosage: UNK
  11. ANDROGEL [Concomitant]
     Active Substance: TESTOSTERONE
     Dosage: UNK

REACTIONS (15)
  - Fluid retention [Unknown]
  - Haemorrhoids [Unknown]
  - Haematochezia [Unknown]
  - Nausea [Unknown]
  - Proctalgia [Unknown]
  - Dysuria [Unknown]
  - Pathogen resistance [Unknown]
  - Weight increased [Unknown]
  - Hyperhidrosis [Unknown]
  - Muscle atrophy [Unknown]
  - Abdominal infection [Unknown]
  - Colitis ulcerative [Recovered/Resolved]
  - Off label use [Unknown]
  - Inappropriate schedule of drug administration [Unknown]
  - Poor venous access [Unknown]

NARRATIVE: CASE EVENT DATE: 2016
